FAERS Safety Report 12380597 (Version 1)
Quarter: 2016Q2

REPORT INFORMATION
  Report Type: Spontaneous
  Country: US (occurrence: US)
  Receive Date: 20160518
  Receipt Date: 20160518
  Transmission Date: 20160815
  Serious: No
  Sender: FDA-Public Use
  Company Number: PHEH2016US012264

PATIENT
  Age: 70 Year
  Sex: Male

DRUGS (2)
  1. VOTRIENT [Suspect]
     Active Substance: PAZOPANIB HYDROCHLORIDE
     Dosage: LOWER DOSE
     Route: 048
     Dates: end: 20160512
  2. VOTRIENT [Suspect]
     Active Substance: PAZOPANIB HYDROCHLORIDE
     Indication: RENAL CANCER
     Dosage: 4 DF, (800 MG) QD
     Route: 048
     Dates: start: 20160324

REACTIONS (10)
  - Hepatic function abnormal [Recovered/Resolved]
  - Blood pressure increased [Recovered/Resolved]
  - Asthenia [Recovered/Resolved]
  - Fatigue [Recovered/Resolved]
  - Blood pressure increased [Unknown]
  - Asthenia [Unknown]
  - Thyroid function test abnormal [Recovered/Resolved]
  - Fatigue [Unknown]
  - Thyroid function test abnormal [Unknown]
  - Hepatic function abnormal [Unknown]

NARRATIVE: CASE EVENT DATE: 20160324
